FAERS Safety Report 7790949-4 (Version None)
Quarter: 2011Q3

REPORT INFORMATION
  Report Type: 
  Country: None (occurrence: None)
  Receive Date: 20110930
  Receipt Date: 20110930
  Transmission Date: 20111222
  Serious: Yes (Other)
  Sender: FDA-Public Use
  Company Number: None

PATIENT
  Sex: Female
  Weight: 87.089 kg

DRUGS (1)
  1. ZIPRASIDONE HYDROCHLORIDE [Suspect]
     Indication: BIPOLAR II DISORDER
     Dosage: 40
     Route: 048
     Dates: start: 20110720, end: 20110925

REACTIONS (2)
  - SELF INJURIOUS BEHAVIOUR [None]
  - LACERATION [None]
